FAERS Safety Report 24986296 (Version 3)
Quarter: 2025Q2

REPORT INFORMATION
  Report Type: Spontaneous
  Country: JP (occurrence: JP)
  Receive Date: 20250219
  Receipt Date: 20250501
  Transmission Date: 20250716
  Serious: Yes (Death, Hospitalization, Other)
  Sender: BRISTOL-MYERS SQUIBB COMPANY
  Company Number: JP-TAIHO-2025-001623

PATIENT
  Age: 66 Year
  Sex: Female
  Weight: 46.5 kg

DRUGS (22)
  1. ABRAXANE [Suspect]
     Active Substance: PACLITAXEL
     Indication: Adenocarcinoma pancreas
     Dosage: ON DAYS 1, 8, AND 15; A TOTAL OF 5 DOSES DAILY DOSE: 160 MILLIGRAM(S)
     Route: 041
     Dates: start: 20241203
  2. ABRAXANE [Suspect]
     Active Substance: PACLITAXEL
     Dosage: ON DAYS 1, 8, AND 15; A TOTAL OF 5 DOSES DAILY DOSE: 160 MILLIGRAM(S)
     Route: 041
     Dates: start: 20241213
  3. ABRAXANE [Suspect]
     Active Substance: PACLITAXEL
     Dosage: ON DAYS 1, 8, AND 15; A TOTAL OF 5 DOSES DAILY DOSE: 160 MILLIGRAM(S)
     Route: 041
     Dates: start: 20241220, end: 20250117
  4. GEMCITABINE HYDROCHLORIDE [Suspect]
     Active Substance: GEMCITABINE HYDROCHLORIDE
     Indication: Adenocarcinoma pancreas
     Dosage: 1300 MG/DAY; ON DAYS 1, 8, AND 15; A TOTAL OF 5 DOSES DAILY DOSE: 1300 MILLIGRAM(S)
     Dates: start: 20241203
  5. GEMCITABINE HYDROCHLORIDE [Suspect]
     Active Substance: GEMCITABINE HYDROCHLORIDE
     Dosage: 1300 MG/DAY; ON DAYS 1, 8, AND 15; A TOTAL OF 5 DOSES DAILY DOSE: 1300 MILLIGRAM(S)
     Dates: start: 20241213
  6. GEMCITABINE HYDROCHLORIDE [Suspect]
     Active Substance: GEMCITABINE HYDROCHLORIDE
     Dosage: 1300 MG/DAY; ON DAYS 1, 8, AND 15; A TOTAL OF 5 DOSES DAILY DOSE: 1300 MILLIGRAM(S)
     Dates: start: 20241220, end: 20250117
  7. LOXOPROFEN SODIUM [Concomitant]
     Active Substance: LOXOPROFEN SODIUM
     Indication: Adenocarcinoma pancreas
     Route: 048
     Dates: start: 20241122, end: 20250210
  8. PANCRELIPASE [Concomitant]
     Active Substance: PANCRELIPASE
     Indication: Adenocarcinoma pancreas
     Route: 048
     Dates: start: 20241213, end: 20250212
  9. PANCRELIPASE [Concomitant]
     Active Substance: PANCRELIPASE
     Route: 048
     Dates: start: 20241122
  10. OXYCODONE HYDROCHLORIDE [Concomitant]
     Active Substance: OXYCODONE HYDROCHLORIDE
     Indication: Adenocarcinoma pancreas
     Route: 048
     Dates: start: 20241202
  11. OXYCODONE HYDROCHLORIDE [Concomitant]
     Active Substance: OXYCODONE HYDROCHLORIDE
     Route: 048
     Dates: start: 20241213, end: 20250210
  12. OXYCODONE HYDROCHLORIDE [Concomitant]
     Active Substance: OXYCODONE HYDROCHLORIDE
     Indication: Adenocarcinoma pancreas
     Route: 048
     Dates: start: 20241202, end: 20250210
  13. SYMPROIC [Concomitant]
     Active Substance: NALDEMEDINE TOSYLATE
     Indication: Adenocarcinoma pancreas
     Route: 048
     Dates: start: 20241203, end: 20250212
  14. VONOPRAZAN FUMARATE [Concomitant]
     Active Substance: VONOPRAZAN FUMARATE
     Indication: Adenocarcinoma pancreas
     Route: 048
     Dates: start: 20241207, end: 20250212
  15. MAGNESIUM OXIDE [Concomitant]
     Active Substance: MAGNESIUM OXIDE
     Indication: Product used for unknown indication
     Route: 048
     Dates: start: 20241206
  16. AMITIZA [Concomitant]
     Active Substance: LUBIPROSTONE
     Indication: Product used for unknown indication
     Route: 048
     Dates: start: 20241213
  17. SODIUM FERROUS CITRATE [Concomitant]
     Active Substance: SODIUM FERROUS CITRATE
     Indication: Adenocarcinoma pancreas
     Route: 048
     Dates: start: 202410, end: 20241206
  18. ESOMEPRAZOLE [Concomitant]
     Active Substance: ESOMEPRAZOLE
     Indication: Adenocarcinoma pancreas
     Route: 048
     Dates: start: 202410, end: 20241206
  19. CALONAL [Concomitant]
     Active Substance: ACETAMINOPHEN
     Indication: Adenocarcinoma pancreas
     Route: 048
     Dates: start: 202410, end: 20241206
  20. LOXOPROFEN SODIUM [Concomitant]
     Active Substance: LOXOPROFEN SODIUM
     Indication: Adenocarcinoma pancreas
     Route: 048
     Dates: start: 20241122, end: 20250210
  21. PANCRELIPASE [Concomitant]
     Active Substance: PANCRELIPASE
     Indication: Adenocarcinoma pancreas
     Route: 048
     Dates: start: 20241213, end: 20250212
  22. PANCRELIPASE [Concomitant]
     Active Substance: PANCRELIPASE
     Route: 048
     Dates: start: 20241122

REACTIONS (2)
  - Hepatic cirrhosis [Fatal]
  - Renal failure [Fatal]

NARRATIVE: CASE EVENT DATE: 20250101
